FAERS Safety Report 13288447 (Version 2)
Quarter: 2017Q4

REPORT INFORMATION
  Report Type: Spontaneous
  Country: US (occurrence: US)
  Receive Date: 20170302
  Receipt Date: 20171011
  Transmission Date: 20180320
  Serious: Yes (Hospitalization)
  Sender: FDA-Public Use
  Company Number: US-ACTELION-A-NJ2017-150459

PATIENT
  Age: 64 Year
  Sex: Male

DRUGS (16)
  1. STOOL SOFTENER (DOCUSATE) [Concomitant]
     Active Substance: DOCUSATE
  2. IRON FERROUS [Concomitant]
  3. FERRO-SEQUELS [Concomitant]
  4. METOLAZONE. [Concomitant]
     Active Substance: METOLAZONE
  5. LANTUS XR [Concomitant]
     Active Substance: INSULIN GLARGINE
  6. OPSUMIT [Suspect]
     Active Substance: MACITENTAN
     Indication: PULMONARY ARTERIAL HYPERTENSION
     Dosage: 10 MG, QD
     Route: 048
  7. VITAMIN D [Concomitant]
     Active Substance: CHOLECALCIFEROL
  8. LIPITOR [Concomitant]
     Active Substance: ATORVASTATIN CALCIUM
  9. GLIPIZIDE. [Concomitant]
     Active Substance: GLIPIZIDE
  10. SILDENAFIL. [Concomitant]
     Active Substance: SILDENAFIL
  11. STELARA [Concomitant]
     Active Substance: USTEKINUMAB
  12. ULORIC [Concomitant]
     Active Substance: FEBUXOSTAT
  13. KLOR-CON [Concomitant]
     Active Substance: POTASSIUM CHLORIDE
  14. HUMALOG [Concomitant]
     Active Substance: INSULIN LISPRO
  15. TORSEMIDE. [Concomitant]
     Active Substance: TORSEMIDE
  16. GLYCOLAX [Concomitant]
     Active Substance: POLYETHYLENE GLYCOL 3350

REACTIONS (7)
  - Tremor [Not Recovered/Not Resolved]
  - Urinary incontinence [Not Recovered/Not Resolved]
  - Cellulitis [Not Recovered/Not Resolved]
  - Abscess limb [Not Recovered/Not Resolved]
  - Osteomyelitis [Not Recovered/Not Resolved]
  - Toe amputation [Not Recovered/Not Resolved]
  - Dyspnoea [Not Recovered/Not Resolved]

NARRATIVE: CASE EVENT DATE: 20170215
